FAERS Safety Report 5679729-3 (Version None)
Quarter: 2008Q1

REPORT INFORMATION
  Report Type: 
  Country: None (occurrence: None)
  Receive Date: 20080321
  Receipt Date: 20080313
  Transmission Date: 20080703
  Serious: Yes (Hospitalization)
  Sender: FDA-Public Use
  Company Number: CAP08000084

PATIENT
  Age: 52 Year
  Sex: Male

DRUGS (4)
  1. ACTONEL [Suspect]
     Indication: OSTEOPOROSIS
     Dosage: 35 MG ONCE WEEKLY, ORAL
     Route: 048
  2. PREDNISONE TAB [Concomitant]
  3. CARBOCAL D (CALCIUM CARBONATE, COLECALCIFEROL) [Concomitant]
  4. DRUG NOS OINTMENT [Concomitant]

REACTIONS (1)
  - HEART RATE IRREGULAR [None]
